FAERS Safety Report 7560796-7 (Version None)
Quarter: 2011Q2

REPORT INFORMATION
  Report Type: 
  Country: None (occurrence: None)
  Receive Date: 20110621
  Receipt Date: 20110610
  Transmission Date: 20111010
  Serious: Yes (Hospitalization)
  Sender: FDA-Public Use
  Company Number: DE-ROCHE-784353

PATIENT
  Sex: Male
  Weight: 74 kg

DRUGS (6)
  1. FLUOROURACIL [Concomitant]
     Indication: RECTAL CANCER METASTATIC
     Dosage: LAST GIVEN DOSAGE PRIOR TO THE EVENTS ON 7 FEB 2011
     Route: 042
     Dates: start: 20101011
  2. DEXAMETHASONE [Concomitant]
     Indication: ANTIEMETIC SUPPORTIVE CARE
     Route: 042
  3. LEUCOVORIN CALCIUM [Concomitant]
     Indication: RECTAL CANCER METASTATIC
     Dosage: LAST GIVEN DOSAGE PRIOR TO THE EVENTS ON 7 FEB 2011
     Route: 042
     Dates: start: 20101011
  4. KEVATRIL [Concomitant]
     Indication: ANTIEMETIC SUPPORTIVE CARE
     Route: 042
  5. IRINOTECAN HYDROCHLORIDE [Concomitant]
     Indication: RECTAL CANCER METASTATIC
     Dosage: LAST GIVEN DOSAGE PRIOR TO THE EVENTS ON 7 FEB 2011
     Route: 042
     Dates: start: 20101011
  6. BEVACIZUMAB [Suspect]
     Indication: RECTAL CANCER METASTATIC
     Dosage: LAST GIVEN DOSAGE PRIOR TO THE EVENTS ON 7 FEB 2011
     Route: 042
     Dates: start: 20101011

REACTIONS (6)
  - GENERAL PHYSICAL HEALTH DETERIORATION [None]
  - DECREASED APPETITE [None]
  - NAUSEA [None]
  - RENAL FAILURE ACUTE [None]
  - VOMITING [None]
  - DIARRHOEA [None]
